FAERS Safety Report 13625554 (Version 1)
Quarter: 2017Q2

REPORT INFORMATION
  Report Type: Spontaneous
  Country: FR (occurrence: FR)
  Receive Date: 20170607
  Receipt Date: 20170607
  Transmission Date: 20170830
  Serious: Yes (Death, Hospitalization, Other)
  Sender: FDA-Public Use
  Company Number: FR-PFIZER INC-2017238736

PATIENT
  Age: 89 Year
  Sex: Female

DRUGS (3)
  1. DAONIL [Suspect]
     Active Substance: GLYBURIDE
     Indication: TYPE 2 DIABETES MELLITUS
     Dosage: 5 MG, 2X/DAY (1 IN THE MORNING AND 1 IN THE EVENING)
     Route: 048
  2. ATARAX [Suspect]
     Active Substance: HYDROXYZINE HYDROCHLORIDE
     Dosage: 25 MG, 1X/DAY
     Route: 048
  3. ZOLOFT [Suspect]
     Active Substance: SERTRALINE HYDROCHLORIDE
     Dosage: 25 MG, 1X/DAY
     Route: 048

REACTIONS (7)
  - Death [Fatal]
  - Coma [Recovered/Resolved with Sequelae]
  - Dementia [Unknown]
  - Heart injury [Unknown]
  - Hypoglycaemia [Recovered/Resolved with Sequelae]
  - Syncope [Recovered/Resolved with Sequelae]
  - Renal injury [Unknown]

NARRATIVE: CASE EVENT DATE: 2008
